FAERS Safety Report 16306422 (Version 1)
Quarter: 2019Q2

REPORT INFORMATION
  Report Type: Spontaneous
  Country: US (occurrence: US)
  Receive Date: 20190406
  Receipt Date: 20190406
  Transmission Date: 20190711
  Serious: Yes (Hospitalization)
  Sender: FDA-Public Use
  Company Number: None

PATIENT
  Age: 75 Year
  Sex: Female
  Weight: 114 kg

DRUGS (10)
  1. LISINOPRIL. [Concomitant]
     Active Substance: LISINOPRIL
  2. PEPCIS [Concomitant]
  3. BYSTOLIC [Concomitant]
     Active Substance: NEBIVOLOL HYDROCHLORIDE
  4. JANUVIA [Concomitant]
     Active Substance: SITAGLIPTIN PHOSPHATE
  5. METFORMIN [Concomitant]
     Active Substance: METFORMIN HYDROCHLORIDE
  6. ARIMIDEX [Suspect]
     Active Substance: ANASTROZOLE
     Dates: end: 20181103
  7. CLARITIN [Concomitant]
     Active Substance: LORATADINE
  8. PROCHLORPERAZINE. [Concomitant]
     Active Substance: PROCHLORPERAZINE
  9. XARELTO [Concomitant]
     Active Substance: RIVAROXABAN
  10. ONDANSETRON [Concomitant]
     Active Substance: ONDANSETRON

REACTIONS (6)
  - Packed red blood cell transfusion [None]
  - Blood lactic acid increased [None]
  - White blood cell count increased [None]
  - Hypotension [None]
  - Pyrexia [None]
  - Pneumonia [None]

NARRATIVE: CASE EVENT DATE: 20190323
